FAERS Safety Report 9481473 (Version 2)
Quarter: 2013Q3

REPORT INFORMATION
  Report Type: Spontaneous
  Country: US (occurrence: US)
  Receive Date: 20130828
  Receipt Date: 20130828
  Transmission Date: 20140515
  Serious: Yes (Hospitalization)
  Sender: FDA-Public Use
  Company Number: US-AMGEN-KDL155012

PATIENT
  Age: 73 Year
  Sex: Male

DRUGS (2)
  1. ENBREL [Suspect]
     Indication: RHEUMATOID ARTHRITIS
     Dosage: 50 MG, QWK
     Route: 058
     Dates: start: 20050901, end: 20050915
  2. ENBREL [Suspect]
     Indication: PSORIASIS

REACTIONS (13)
  - Cerebrovascular accident [Recovered/Resolved with Sequelae]
  - Cardiac disorder [Recovered/Resolved]
  - Memory impairment [Recovered/Resolved]
  - Speech disorder [Recovered/Resolved]
  - Abasia [Recovered/Resolved]
  - Dysstasia [Recovered/Resolved]
  - Weight decreased [Unknown]
  - Thrombosis [Recovered/Resolved]
  - Pneumonia aspiration [Recovered/Resolved]
  - Urinary tract infection [Recovered/Resolved]
  - Vomiting [Recovered/Resolved]
  - Asthenia [Recovered/Resolved]
  - Pain [Recovered/Resolved]
